FAERS Safety Report 7671592-4 (Version None)
Quarter: 2011Q3

REPORT INFORMATION
  Report Type: 
  Country: None (occurrence: None)
  Receive Date: 20110809
  Receipt Date: 20110805
  Transmission Date: 20111222
  Serious: Yes (Hospitalization)
  Sender: FDA-Public Use
  Company Number: BE-SHIRE-SPV1-2011-00977

PATIENT
  Age: 73 Year
  Sex: Female
  Weight: 70 kg

DRUGS (7)
  1. CRESTOR [Concomitant]
     Indication: HYPERCHOLESTEROLAEMIA
     Dosage: 20 MG, 1X/DAY:QD
  2. ASAFLOW [Concomitant]
     Indication: CEREBROVASCULAR ACCIDENT
     Dosage: 80 MG, UNKNOWN
  3. PANTOPRAZOLE [Concomitant]
     Indication: OESOPHAGITIS
     Dosage: 40 MG, 1X/DAY:QD
  4. BISOPROLOL FUMARATE [Concomitant]
     Indication: HYPERTENSION
     Dosage: 5 MG, 1X/DAY:QD
  5. SINTROM [Concomitant]
     Indication: PULMONARY EMBOLISM
     Dosage: 4 MG, 1X/DAY:QD
  6. ANAGRELIDE HYDROCHLORIDE [Suspect]
     Indication: ESSENTIAL THROMBOCYTHAEMIA
     Dosage: 1.5 MG, 1X/DAY:QD
     Route: 048
     Dates: start: 20101102
  7. SINTROM [Concomitant]
     Indication: CARDIAC VALVE PROSTHESIS USER

REACTIONS (1)
  - ACUTE CORONARY SYNDROME [None]
